FAERS Safety Report 9747457 (Version 1)
Quarter: 2013Q4

REPORT INFORMATION
  Report Type: Spontaneous
  Country: US (occurrence: US)
  Receive Date: 20131212
  Receipt Date: 20131212
  Transmission Date: 20140711
  Serious: Yes (Hospitalization)
  Sender: FDA-Public Use
  Company Number: US-BIOGENIDEC-2013BI118031

PATIENT
  Age: 53 Year
  Sex: Male

DRUGS (1)
  1. TECFIDERA [Suspect]
     Indication: MULTIPLE SCLEROSIS
     Route: 048
     Dates: start: 20131130, end: 20131130

REACTIONS (5)
  - Flushing [Unknown]
  - Burning sensation [Unknown]
  - Pruritus [Unknown]
  - Swelling face [Unknown]
  - Lip swelling [Unknown]
